FAERS Safety Report 16269733 (Version 1)
Quarter: 2019Q2

REPORT INFORMATION
  Report Type: Spontaneous
  Country: SE (occurrence: SE)
  Receive Date: 20190503
  Receipt Date: 20190503
  Transmission Date: 20190711
  Serious: Yes (Hospitalization)
  Sender: FDA-Public Use
  Company Number: SE-TEVA-2019-SE-1044765

PATIENT
  Sex: Male

DRUGS (2)
  1. LOPERAMIDE [Suspect]
     Active Substance: LOPERAMIDE
     Dosage: 90-100 ST
     Route: 048
     Dates: start: 20170930, end: 20170930
  2. GABAPENTIN. [Suspect]
     Active Substance: GABAPENTIN
     Dosage: 25 ST, ^6-7G^
     Route: 065
     Dates: start: 20170930, end: 20170930

REACTIONS (4)
  - Intentional overdose [Unknown]
  - Intentional self-injury [Unknown]
  - Fatigue [Unknown]
  - Muscle twitching [Unknown]

NARRATIVE: CASE EVENT DATE: 20170930
